FAERS Safety Report 17951816 (Version 2)
Quarter: 2020Q3

REPORT INFORMATION
  Report Type: Report from Study
  Country: CA (occurrence: CA)
  Receive Date: 20200626
  Receipt Date: 20200709
  Transmission Date: 20201103
  Serious: Yes (Hospitalization)
  Sender: FDA-Public Use
  Company Number: CA-JNJFOC-20200629992

PATIENT
  Age: 21 Year
  Sex: Female
  Weight: 70 kg

DRUGS (2)
  1. STELARA [Suspect]
     Active Substance: USTEKINUMAB
     Dosage: STELARA IV REINDUCTION
     Route: 042
     Dates: start: 20200622
  2. STELARA [Suspect]
     Active Substance: USTEKINUMAB
     Indication: CROHN^S DISEASE
     Route: 058
     Dates: start: 20181012

REACTIONS (2)
  - Crohn^s disease [Not Recovered/Not Resolved]
  - Liver disorder [Unknown]

NARRATIVE: CASE EVENT DATE: 20200618
